FAERS Safety Report 24304514 (Version 1)
Quarter: 2024Q3

REPORT INFORMATION
  Report Type: Spontaneous
  Country: US (occurrence: US)
  Receive Date: 20240910
  Receipt Date: 20240910
  Transmission Date: 20241017
  Serious: No
  Sender: AMPHASTAR
  Company Number: US-Amphastar Pharmaceuticals, Inc.-2161455

PATIENT
  Age: 59 Year
  Sex: Female

DRUGS (1)
  1. GLUCAGON [Suspect]
     Active Substance: GLUCAGON\GLUCAGON HYDROCHLORIDE\WATER
     Indication: Hypoglycaemia

REACTIONS (2)
  - Influenza like illness [Recovered/Resolved]
  - Nausea [Recovered/Resolved]
